FAERS Safety Report 5273502-6 (Version None)
Quarter: 2007Q1

REPORT INFORMATION
  Report Type: 
  Country: None (occurrence: None)
  Receive Date: 20070321
  Receipt Date: 20070321
  Transmission Date: 20070707
  Serious: Yes (Other)
  Sender: FDA-Public Use
  Company Number: None

PATIENT
  Age: 76 Year
  Sex: Male
  Weight: 86.1834 kg

DRUGS (5)
  1. PHENYTOIN [Suspect]
     Indication: CONVULSION
     Dosage: ONE CAPSULE TWICE DAILY BY MOUTH
     Route: 048
     Dates: start: 20070228, end: 20070303
  2. FLOMAX [Concomitant]
  3. PHENOBARBITAL TAB [Concomitant]
  4. PRIMIDONE [Concomitant]
  5. ADVIL [Concomitant]

REACTIONS (4)
  - CONVULSION [None]
  - DRUG DOSE OMISSION [None]
  - HEADACHE [None]
  - PHARMACEUTICAL PRODUCT COMPLAINT [None]
